FAERS Safety Report 5297979-5 (Version None)
Quarter: 2007Q2

REPORT INFORMATION
  Report Type: 
  Country: None (occurrence: None)
  Receive Date: 20070416
  Receipt Date: 20070403
  Transmission Date: 20071010
  Serious: Yes (Other)
  Sender: FDA-Public Use
  Company Number: PHEH2007US03990

PATIENT
  Age: 50 Year
  Sex: Female

DRUGS (16)
  1. NITROGLYCERIN [Concomitant]
     Dosage: UNK, PRN
  2. TOPROL-XL [Concomitant]
     Indication: HEART RATE ABNORMAL
     Dosage: 50 MG, QD
     Dates: start: 20050601
  3. ZANAFLEX [Concomitant]
     Dosage: 4 MG, QD
  4. NEURONTIN [Concomitant]
     Dosage: 300 MG, QD
  5. LYRICA [Concomitant]
     Dosage: 75 MG, QD
  6. DARVOCET-N 100 [Concomitant]
     Dosage: 100/650 MG, Q 4-6 HOURS, PRN
  7. MEPERIDINE W/PROMETHAZINE [Concomitant]
     Dosage: 50 / 25 MG, PRN
  8. ALBUTEROL SULATE [Concomitant]
     Dosage: 90 UG, PRN
  9. LIPITOR [Concomitant]
     Dosage: 10 MG, QD
  10. DIOVAN [Concomitant]
     Dosage: 160 MG, BID
     Dates: start: 20000101
  11. LASIX [Concomitant]
     Dosage: 20 MG, BID
     Dates: start: 20000101
  12. PREVACID [Concomitant]
     Dosage: 15 MG, BID
  13. MECLIZINE [Concomitant]
     Dosage: 25 MG, QW2
  14. ALLEGRA [Concomitant]
     Dosage: 60 MG, QW2
  15. ZELNORM [Suspect]
     Indication: IRRITABLE BOWEL SYNDROME
     Dosage: 6 MG, QD
     Route: 048
     Dates: start: 20020101, end: 20020101
  16. ZELNORM [Suspect]
     Dosage: 2 MG, QD
     Route: 048
     Dates: start: 20020101, end: 20060801

REACTIONS (3)
  - CORONARY ARTERIAL STENT INSERTION [None]
  - HEART RATE ABNORMAL [None]
  - HEART RATE IRREGULAR [None]
